FAERS Safety Report 25300017 (Version 1)
Quarter: 2025Q2

REPORT INFORMATION
  Report Type: Report from Study
  Country: US (occurrence: US)
  Receive Date: 20250512
  Receipt Date: 20250512
  Transmission Date: 20250717
  Serious: Yes (Hospitalization, Other)
  Sender: ABBVIE
  Company Number: US-ABBVIE-6275888

PATIENT
  Age: 33 Year
  Sex: Male

DRUGS (1)
  1. RINVOQ [Suspect]
     Active Substance: UPADACITINIB
     Indication: Colitis ulcerative
     Dosage: STRENGTH: 45MG
     Route: 048
     Dates: start: 202503, end: 20250502

REACTIONS (3)
  - Appendicitis perforated [Recovering/Resolving]
  - Drug ineffective [Unknown]
  - Gangrene [Recovering/Resolving]

NARRATIVE: CASE EVENT DATE: 20250101
